FAERS Safety Report 12918407 (Version 4)
Quarter: 2016Q4

REPORT INFORMATION
  Report Type: Spontaneous
  Country: FR (occurrence: FR)
  Receive Date: 20161107
  Receipt Date: 20161122
  Transmission Date: 20170207
  Serious: Yes (Hospitalization, Other)
  Sender: FDA-Public Use
  Company Number: FR-PFIZER INC-2016500352

PATIENT
  Age: 65 Year
  Sex: Male

DRUGS (6)
  1. DYSPORT [Suspect]
     Active Substance: ABOBOTULINUMTOXINA
     Indication: HYPERTONIA
     Dosage: 100 IU, SINGLE
     Route: 030
     Dates: start: 20160711, end: 20160711
  2. GUTRON [Suspect]
     Active Substance: MIDODRINE
     Indication: ORTHOSTATIC HYPOTENSION
     Dosage: 2.5 MG PER FOUR TABLET DAILY
     Route: 050
     Dates: start: 2014, end: 20161010
  3. XANAX [Suspect]
     Active Substance: ALPRAZOLAM
     Indication: ANXIETY
     Dosage: 0.25 MG PER TWO TABLET DAILY
     Dates: end: 20161010
  4. GAVISCON /00237601/ [Suspect]
     Active Substance: ALUMINUM HYDROXIDE\MAGNESIUM CARBONATE
     Indication: GASTROOESOPHAGEAL REFLUX DISEASE
     Dosage: 1 DF, DAILY
     Dates: end: 20161010
  5. INIPOMP [Suspect]
     Active Substance: PANTOPRAZOLE SODIUM
     Indication: PROPHYLAXIS
     Dosage: 40 MG PER TWO DOSAGE FORM DAILY
     Dates: start: 201608, end: 20160926
  6. SEROPLEX [Suspect]
     Active Substance: ESCITALOPRAM OXALATE
     Indication: DEPRESSION
     Dosage: 10 MG, QD
     Dates: end: 20161010

REACTIONS (12)
  - General physical health deterioration [Unknown]
  - Vomiting [Recovering/Resolving]
  - Hypercapnia [Unknown]
  - Intestinal obstruction [Recovering/Resolving]
  - Faecal vomiting [Recovering/Resolving]
  - Asthenia [Recovering/Resolving]
  - Urinary retention [Recovering/Resolving]
  - Fatigue [Unknown]
  - Urinary incontinence [Unknown]
  - Hypoxia [Unknown]
  - Miosis [Unknown]
  - Respiratory disorder [Unknown]

NARRATIVE: CASE EVENT DATE: 201608
